FAERS Safety Report 5750672-4 (Version None)
Quarter: 2008Q2

REPORT INFORMATION
  Report Type: 
  Country: None (occurrence: None)
  Receive Date: 20080528
  Receipt Date: 20080519
  Transmission Date: 20081010
  Serious: Yes (Death)
  Sender: FDA-Public Use
  Company Number: PE-JNJFOC-20080504669

PATIENT
  Age: 44 Year
  Sex: Male

DRUGS (12)
  1. PREZISTA [Suspect]
     Indication: HIV INFECTION
  2. LAMIVUDINE [Concomitant]
  3. TENOFOVIR [Concomitant]
  4. RITONAVIR [Concomitant]
  5. EFAVIRENZ [Concomitant]
  6. PYRAZINAMIDE [Concomitant]
  7. ETAMBUTOL [Concomitant]
  8. RIFAMPICIN [Concomitant]
  9. ISONIAZID [Concomitant]
  10. MIDAZOLAM HCL [Concomitant]
  11. FENITOINE [Concomitant]
  12. AMPHOTERICIN B [Concomitant]

REACTIONS (1)
  - DEATH [None]
